FAERS Safety Report 17280934 (Version 6)
Quarter: 2021Q2

REPORT INFORMATION
  Report Type: Spontaneous
  Country: JP (occurrence: JP)
  Receive Date: 20200117
  Receipt Date: 20210427
  Transmission Date: 20210716
  Serious: Yes (Hospitalization, Other)
  Sender: FDA-Public Use
  Company Number: JP-ASTELLAS-2020JP000653

PATIENT
  Age: 69 Year
  Sex: Male
  Weight: 62 kg

DRUGS (10)
  1. FEBURIC [Concomitant]
     Active Substance: FEBUXOSTAT
     Indication: HYPERURICAEMIA
     Route: 048
     Dates: start: 20171114
  2. XTANDI [Suspect]
     Active Substance: ENZALUTAMIDE
     Indication: PROSTATE CANCER
     Route: 048
     Dates: start: 20191226, end: 20191227
  3. PREDONINE [Concomitant]
     Active Substance: PREDNISOLONE
     Indication: PROSTATE CANCER
     Route: 048
     Dates: start: 20190807
  4. XTANDI [Suspect]
     Active Substance: ENZALUTAMIDE
     Route: 048
     Dates: start: 20191228, end: 20200107
  5. JEVTANA [Concomitant]
     Active Substance: CABAZITAXEL
     Indication: PROSTATE CANCER
     Route: 048
     Dates: start: 20191128, end: 20191221
  6. LEUPLIN [Concomitant]
     Active Substance: LEUPROLIDE ACETATE
     Indication: PROSTATE CANCER
     Route: 023
     Dates: start: 20170919
  7. SOTACOR [SOTALOL HYDROCHLORIDE] [Concomitant]
     Indication: VENTRICULAR FIBRILLATION
     Route: 048
     Dates: start: 20190326
  8. JU?KAMA [Concomitant]
     Active Substance: MAGNESIUM OXIDE
     Indication: CONSTIPATION
     Dosage: 0.5 MG, THRICE DAILY
     Route: 048
     Dates: start: 20190219
  9. FERROMIA [Concomitant]
     Active Substance: SODIUM FERROUS CITRATE
     Indication: ANAEMIA
     Route: 048
     Dates: start: 20190821
  10. ARTIST [Concomitant]
     Active Substance: CARVEDILOL
     Indication: VENTRICULAR FIBRILLATION
     Route: 048
     Dates: start: 20170612

REACTIONS (3)
  - Cerebellar haemorrhage [Recovering/Resolving]
  - Prescribed underdose [Unknown]
  - Hydrocephalus [Recovering/Resolving]

NARRATIVE: CASE EVENT DATE: 20191226
